FAERS Safety Report 7388861-8 (Version None)
Quarter: 2011Q1

REPORT INFORMATION
  Report Type: 
  Country: None (occurrence: None)
  Receive Date: 20110329
  Receipt Date: 20110329
  Transmission Date: 20110831
  Serious: Yes (Other)
  Sender: FDA-Public Use
  Company Number: None

PATIENT
  Sex: Male
  Weight: 98.8842 kg

DRUGS (4)
  1. DEPAKOTE [Concomitant]
  2. HYDROCHLOROTHIAZIDE [Concomitant]
  3. LISINOPRIL [Concomitant]
  4. FAZACLO (CLOZAPINE) 100MG FAZACLO [Suspect]
     Indication: SCHIZOPHRENIA
     Dosage: 100MG -} QAM P.O. 047 200MG -} QPM P.O. 047
     Route: 048
     Dates: start: 20100928, end: 20101011

REACTIONS (5)
  - TROPONIN INCREASED [None]
  - TACHYCARDIA [None]
  - MYOCARDITIS [None]
  - PERICARDIAL EFFUSION [None]
  - PYREXIA [None]
